FAERS Safety Report 12495339 (Version 1)
Quarter: 2016Q2

REPORT INFORMATION
  Report Type: Spontaneous
  Country: FR (occurrence: FR)
  Receive Date: 20160624
  Receipt Date: 20160624
  Transmission Date: 20160815
  Serious: Yes (Hospitalization)
  Sender: FDA-Public Use
  Company Number: FR-FRESENIUS KABI-FK201603824

PATIENT
  Age: 44 Year
  Sex: Male

DRUGS (6)
  1. DALACINE [Concomitant]
     Active Substance: CLINDAMYCIN HYDROCHLORIDE
     Route: 048
  2. VANCOMYCIN KABI 1000MG [Suspect]
     Active Substance: VANCOMYCIN HYDROCHLORIDE
     Indication: ANTIBIOTIC THERAPY
     Route: 042
     Dates: start: 20151015, end: 20151023
  3. PIPERACILLIN / TAZOBACTAM KABI 2 G / 0.25 G [Suspect]
     Active Substance: PIPERACILLIN SODIUM\TAZOBACTAM SODIUM
     Indication: ANTIBIOTIC THERAPY
     Route: 042
     Dates: start: 20151016, end: 20151021
  4. ACICLOVIR [Suspect]
     Active Substance: ACYCLOVIR
     Indication: PRODUCT USED FOR UNKNOWN INDICATION
     Route: 042
     Dates: start: 20151005, end: 20151021
  5. TIENAM [Suspect]
     Active Substance: CILASTATIN SODIUM\IMIPENEM
     Indication: PRODUCT USED FOR UNKNOWN INDICATION
     Route: 042
     Dates: start: 20151016, end: 20151021
  6. OFLOXACINE MYLAN 200 MG/40 ML SOLUTION POUR PERFUSION [Suspect]
     Active Substance: OFLOXACIN
     Indication: PRODUCT USED FOR UNKNOWN INDICATION
     Route: 042
     Dates: start: 20151021, end: 20151024

REACTIONS (1)
  - Acute kidney injury [Recovering/Resolving]

NARRATIVE: CASE EVENT DATE: 20151023
